FAERS Safety Report 16703288 (Version 1)
Quarter: 2019Q3

REPORT INFORMATION
  Report Type: Spontaneous
  Country: CH (occurrence: CH)
  Receive Date: 20190814
  Receipt Date: 20190814
  Transmission Date: 20191004
  Serious: Yes (Death)
  Sender: FDA-Public Use
  Company Number: CH-009507513-1908CHE003838

PATIENT
  Sex: Male

DRUGS (2)
  1. KEYTRUDA [Suspect]
     Active Substance: PEMBROLIZUMAB
     Dosage: UNK
     Dates: start: 20181029
  2. NOVALGIN (DIPYRONE) [Suspect]
     Active Substance: DIPYRONE
     Dosage: UNK
     Route: 048

REACTIONS (1)
  - Bone marrow failure [Fatal]
